FAERS Safety Report 9574615 (Version 1)
Quarter: 2013Q4

REPORT INFORMATION
  Report Type: Spontaneous
  Country: US (occurrence: US)
  Receive Date: 20131001
  Receipt Date: 20131001
  Transmission Date: 20140711
  Serious: Yes (Other)
  Sender: FDA-Public Use
  Company Number: US-ELI_LILLY_AND_COMPANY-US201309007641

PATIENT
  Sex: Male

DRUGS (2)
  1. ZYPREXA RAPID ACTING IM [Suspect]
     Indication: AGITATION
     Dosage: 1 DF, SINGLE
     Route: 030
     Dates: start: 201308, end: 201308
  2. ATIVAN [Suspect]
     Indication: AGITATION
     Dosage: 1 DF, SINGLE
     Route: 030
     Dates: start: 201308

REACTIONS (3)
  - Post-injection delirium sedation syndrome [Recovered/Resolved]
  - Somnolence [Recovered/Resolved]
  - Heart rate decreased [Recovered/Resolved]
